FAERS Safety Report 6766157-2 (Version None)
Quarter: 2010Q2

REPORT INFORMATION
  Report Type: 
  Country: None (occurrence: None)
  Receive Date: 20100611
  Receipt Date: 20100601
  Transmission Date: 20101027
  Serious: Yes (Hospitalization)
  Sender: FDA-Public Use
  Company Number: US-PURDUE-GBR-2010-0006620

PATIENT
  Age: 61 Year
  Sex: Female

DRUGS (4)
  1. NON-PMN MORPHINE SULFATE [Suspect]
     Indication: BACK PAIN
     Dosage: 5 MG, DAILY
     Route: 037
  2. NON-PMN MORPHINE SULFATE [Suspect]
     Indication: PAIN IN EXTREMITY
     Dosage: 3 MG, DAILY
     Route: 037
  3. NON-PMN MORPHINE SULFATE [Suspect]
     Dosage: 5 MG, DAILY
     Route: 037
  4. NON-PMN MORPHINE SULFATE [Suspect]
     Dosage: 1 MG, DAILY
     Route: 037

REACTIONS (2)
  - CELLULITIS [None]
  - OEDEMA PERIPHERAL [None]
